FAERS Safety Report 12356394 (Version 1)
Quarter: 2016Q2

REPORT INFORMATION
  Report Type: Spontaneous
  Country: US (occurrence: US)
  Receive Date: 20160511
  Receipt Date: 20160511
  Transmission Date: 20160815
  Serious: No
  Sender: FDA-Public Use
  Company Number: US-QOL MEDICAL, LLC-1051951

PATIENT
  Age: 35 Month
  Sex: Male
  Weight: 14.55 kg

DRUGS (2)
  1. COUGH MEDICINE [Concomitant]
     Active Substance: UNSPECIFIED INGREDIENT
  2. SUCRAID [Suspect]
     Active Substance: SACROSIDASE
     Indication: SUCRASE-ISOMALTASE DEFICIENCY
     Route: 048
     Dates: start: 20150201

REACTIONS (3)
  - Rash [Recovered/Resolved]
  - Rash generalised [None]
  - Miliaria [None]
